FAERS Safety Report 13211979 (Version 1)
Quarter: 2017Q1

REPORT INFORMATION
  Report Type: Report from Study
  Country: GB (occurrence: GB)
  Receive Date: 20170210
  Receipt Date: 20170210
  Transmission Date: 20170428
  Serious: Yes (Hospitalization)
  Sender: FDA-Public Use
  Company Number: GB-JNJFOC-20170207171

PATIENT
  Age: 51 Year
  Sex: Male
  Weight: 108 kg

DRUGS (15)
  1. EPADERM [Concomitant]
     Active Substance: MINERAL OIL\PETROLATUM\WAX, EMULSIFYING
     Route: 065
     Dates: start: 19980210
  2. CICLOSPORIN [Concomitant]
     Active Substance: CYCLOSPORINE
     Route: 065
     Dates: start: 20140128, end: 20140823
  3. LISINOPRIL. [Concomitant]
     Active Substance: LISINOPRIL
     Route: 065
     Dates: start: 20000804
  4. NICARDIPINE [Concomitant]
     Active Substance: NICARDIPINE
     Route: 065
     Dates: start: 20130822
  5. GLYCERYL TRINITRATE [Concomitant]
     Active Substance: NITROGLYCERIN
     Route: 065
     Dates: start: 20130822
  6. ASPIRIN. [Concomitant]
     Active Substance: ASPIRIN
     Route: 065
     Dates: start: 20000804, end: 20131105
  7. ATORVASTATIN [Concomitant]
     Active Substance: ATORVASTATIN
     Route: 065
     Dates: start: 20070715
  8. BISOPROLOL [Concomitant]
     Active Substance: BISOPROLOL
     Route: 065
     Dates: start: 20130822
  9. LANSOPRAZOLE. [Concomitant]
     Active Substance: LANSOPRAZOLE
     Route: 065
     Dates: start: 20131105
  10. STELARA [Suspect]
     Active Substance: USTEKINUMAB
     Indication: PSORIASIS
     Route: 058
     Dates: start: 20120109, end: 20140812
  11. EUMOVATE [Concomitant]
     Active Substance: CLOBETASONE BUTYRATE
     Route: 065
     Dates: start: 19831123
  12. PARACETAMOL [Concomitant]
     Active Substance: ACETAMINOPHEN
     Route: 065
     Dates: start: 20121212
  13. CLOPIDOGREL [Concomitant]
     Active Substance: CLOPIDOGREL BISULFATE
     Route: 065
     Dates: start: 20131105
  14. NAPROXEN. [Concomitant]
     Active Substance: NAPROXEN
     Route: 065
     Dates: start: 20141216
  15. FUROSEMIDE. [Concomitant]
     Active Substance: FUROSEMIDE
     Route: 065
     Dates: start: 20111206

REACTIONS (5)
  - Off label use [Unknown]
  - Vomiting [Recovered/Resolved]
  - Product use issue [Unknown]
  - Dizziness [Recovered/Resolved]
  - Vertigo [Recovered/Resolved]

NARRATIVE: CASE EVENT DATE: 20120109
